FAERS Safety Report 25030059 (Version 1)
Quarter: 2025Q1

REPORT INFORMATION
  Report Type: Spontaneous
  Country: US (occurrence: US)
  Receive Date: 20250303
  Receipt Date: 20250303
  Transmission Date: 20250408
  Serious: Yes (Death, Hospitalization)
  Sender: INGENUS
  Company Number: US-INGENUS PHARMACEUTICALS, LLC-2025INF000005

PATIENT
  Age: 43 Year
  Sex: Female

DRUGS (3)
  1. ARSENIC TRIOXIDE [Suspect]
     Active Substance: ARSENIC TRIOXIDE
     Indication: Product used for unknown indication
     Route: 048
  2. CYANIDE ANION [Suspect]
     Active Substance: CYANIDE ANION
     Indication: Product used for unknown indication
     Route: 048
  3. TETRAHYDROZOLINE [Suspect]
     Active Substance: TETRAHYDROZOLINE
     Indication: Product used for unknown indication
     Route: 048

REACTIONS (7)
  - Toxicity to various agents [Fatal]
  - Brain oedema [Fatal]
  - Hypotension [Fatal]
  - Hypoxia [Fatal]
  - Somnolence [Fatal]
  - Tachypnoea [Fatal]
  - Generalised tonic-clonic seizure [Recovered/Resolved]
